FAERS Safety Report 20035415 (Version 1)
Quarter: 2021Q4

REPORT INFORMATION
  Report Type: Spontaneous
  Country: DE (occurrence: DE)
  Receive Date: 20211104
  Receipt Date: 20211104
  Transmission Date: 20220304
  Serious: Yes (Hospitalization, Other)
  Sender: FDA-Public Use
  Company Number: DE-BAYER-2021A238024

PATIENT
  Age: 36 Year
  Sex: Female

DRUGS (8)
  1. SORAFENIB [Suspect]
     Active Substance: SORAFENIB
     Indication: Hepatocellular carcinoma
     Dosage: DAILY DOSE 800 MG
     Dates: start: 201512
  2. SORAFENIB [Suspect]
     Active Substance: SORAFENIB
     Indication: Hepatocellular carcinoma
     Dosage: DAILY DOSE 600 MG
     Dates: start: 201601
  3. SORAFENIB [Suspect]
     Active Substance: SORAFENIB
     Indication: Hepatocellular carcinoma
     Dosage: DAILY DOSE 400 MG
     Dates: end: 201602
  4. TACROLIMUS [Concomitant]
     Active Substance: TACROLIMUS
     Dosage: UNK
  5. CABOZANTINIB [Concomitant]
     Active Substance: CABOZANTINIB
     Dosage: DAILY DOSE 40 MG
     Dates: start: 201806, end: 201904
  6. CABOZANTINIB [Concomitant]
     Active Substance: CABOZANTINIB
     Dosage: DAILY DOSE 60 MG
  7. CABOZANTINIB [Concomitant]
     Active Substance: CABOZANTINIB
     Dosage: DOSE REDUCED (40 OR 20 MG)
  8. CABOZANTINIB [Concomitant]
     Active Substance: CABOZANTINIB
     Dosage: UNK
     Dates: start: 201908

REACTIONS (8)
  - Hyperthyroidism [Recovering/Resolving]
  - Hepatocellular carcinoma [None]
  - Palmar-plantar erythrodysaesthesia syndrome [Recovering/Resolving]
  - Pruritus [Recovered/Resolved]
  - Mucosal inflammation [Recovered/Resolved]
  - Diarrhoea [Recovered/Resolved]
  - Hepatic function abnormal [Recovered/Resolved]
  - Transaminases increased [Recovered/Resolved]

NARRATIVE: CASE EVENT DATE: 20170201
